FAERS Safety Report 6728546-1 (Version None)
Quarter: 2010Q2

REPORT INFORMATION
  Report Type: 
  Country: None (occurrence: None)
  Receive Date: 20100517
  Receipt Date: 20100505
  Transmission Date: 20101027
  Serious: Yes (Other)
  Sender: FDA-Public Use
  Company Number: US-PFIZER INC-2010057363

PATIENT
  Sex: Male
  Weight: 95 kg

DRUGS (10)
  1. XALATAN [Suspect]
     Indication: GLAUCOMA
     Dosage: 1DROP IN EACH EYE, ONCE DAILY
     Route: 047
     Dates: start: 20010101
  2. TIMOPTIC [Concomitant]
     Indication: GLAUCOMA
     Dosage: UNK
  3. PAXIL [Concomitant]
     Dosage: UNK
  4. CRESTOR [Concomitant]
     Indication: BLOOD CHOLESTEROL INCREASED
     Dosage: UNK
  5. NIASPAN [Concomitant]
     Indication: BLOOD TRIGLYCERIDES INCREASED
     Dosage: UNK
  6. FISH OIL [Concomitant]
     Indication: BLOOD TRIGLYCERIDES INCREASED
     Dosage: UNK
  7. METOPROLOL [Concomitant]
     Indication: HYPERTENSION
     Dosage: UNK, 2X/DAY
  8. NEXIUM [Concomitant]
     Indication: GASTROOESOPHAGEAL REFLUX DISEASE
     Dosage: UNK
  9. ACETYLSALICYLIC ACID [Concomitant]
     Indication: ROUTINE HEALTH MAINTENANCE
     Dosage: UNK
  10. CELEBREX [Concomitant]
     Indication: ARTHRITIS
     Dosage: UNK

REACTIONS (1)
  - HIP ARTHROPLASTY [None]
